FAERS Safety Report 16838531 (Version 2)
Quarter: 2019Q3

REPORT INFORMATION
  Report Type: Spontaneous
  Country: GB (occurrence: GB)
  Receive Date: 20190923
  Receipt Date: 20190927
  Transmission Date: 20191005
  Serious: Yes (Other)
  Sender: FDA-Public Use
  Company Number: GB-KADMON PHARMACEUTICALS, LLC-KAD-201909-01482

PATIENT
  Age: 15 Year
  Sex: Female
  Weight: 77 kg

DRUGS (8)
  1. ACICLOVIR [Concomitant]
     Active Substance: ACYCLOVIR
  2. METOCLOPRAMIDE. [Concomitant]
     Active Substance: METOCLOPRAMIDE
  3. RIBAVIRIN. [Suspect]
     Active Substance: RIBAVIRIN
     Indication: RESPIRATORY SYNCYTIAL VIRUS INFECTION
     Dosage: DAILY DOSE: 3.6 GM EVERY DAY; (1.2 GM)
     Route: 042
     Dates: start: 20151218, end: 20151219
  4. CYCLOSPORINE. [Concomitant]
     Active Substance: CYCLOSPORINE
  5. MYCOPHENOLATE MOFETIL. [Concomitant]
     Active Substance: MYCOPHENOLATE MOFETIL
  6. MEROPENEM. [Concomitant]
     Active Substance: MEROPENEM
  7. VORICONAZOLE. [Concomitant]
     Active Substance: VORICONAZOLE
  8. CLONIDINE. [Concomitant]
     Active Substance: CLONIDINE

REACTIONS (2)
  - Generalised tonic-clonic seizure [Recovered/Resolved]
  - Off label use [Unknown]

NARRATIVE: CASE EVENT DATE: 20151219
